FAERS Safety Report 7391233-3 (Version None)
Quarter: 2011Q2

REPORT INFORMATION
  Report Type: 
  Country: None (occurrence: None)
  Receive Date: 20110404
  Receipt Date: 20100517
  Transmission Date: 20111010
  Serious: No
  Sender: FDA-Public Use
  Company Number: US-PFIZER INC-2009284276

PATIENT
  Sex: Female
  Weight: 58.97 kg

DRUGS (6)
  1. ZOLOFT [Suspect]
     Indication: ANXIETY
     Dosage: 12.5 MG, UNK
     Route: 048
     Dates: start: 20090701, end: 20090701
  2. MULTI-VITAMINS [Concomitant]
     Dosage: UNK
  3. LEXAPRO [Suspect]
     Dosage: UNK
  4. FOLIC ACID [Concomitant]
     Dosage: UNK
  5. VITAMIN B-12 [Concomitant]
     Dosage: UNK
  6. ZOLOFT [Suspect]
     Indication: IMPAIRED GASTRIC EMPTYING
     Dosage: 12.5 MG, UNK
     Route: 048
     Dates: start: 20050101, end: 20060801

REACTIONS (8)
  - OCULAR HYPERAEMIA [None]
  - THYROID DISORDER [None]
  - SCLERAL DISORDER [None]
  - DRUG HYPERSENSITIVITY [None]
  - FOOD ALLERGY [None]
  - REACTION TO PRESERVATIVES [None]
  - HYPERSENSITIVITY [None]
  - EYE PRURITUS [None]
